FAERS Safety Report 8391871-5 (Version None)
Quarter: 2012Q2

REPORT INFORMATION
  Report Type: 
  Country: None (occurrence: None)
  Receive Date: 20120529
  Receipt Date: 20120525
  Transmission Date: 20120825
  Serious: Yes (Hospitalization)
  Sender: FDA-Public Use
  Company Number: US-GLAXOSMITHKLINE-A0975776A

PATIENT
  Age: 84 Year
  Sex: Female
  Weight: 57.7 kg

DRUGS (1)
  1. MELPHALAN HYDROCHLORIDE [Suspect]
     Indication: MULTIPLE MYELOMA
     Dosage: 10MG SEE DOSAGE TEXT
     Route: 048
     Dates: start: 20120217, end: 20120221

REACTIONS (1)
  - DYSPNOEA [None]
